FAERS Safety Report 24562055 (Version 3)
Quarter: 2024Q4

REPORT INFORMATION
  Report Type: Spontaneous
  Country: US (occurrence: US)
  Receive Date: 20241029
  Receipt Date: 20241210
  Transmission Date: 20250114
  Serious: No
  Sender: BIOMARIN
  Company Number: US-BIOMARINAP-US-2024-161435

PATIENT

DRUGS (2)
  1. PALYNZIQ [Suspect]
     Active Substance: PEGVALIASE-PQPZ
     Indication: Product used for unknown indication
     Dosage: 40 MILLIGRAM, QD
     Route: 065
  2. PALYNZIQ [Suspect]
     Active Substance: PEGVALIASE-PQPZ
     Dosage: 20 MILLIGRAM, QD
     Route: 065

REACTIONS (4)
  - Brain fog [Unknown]
  - Drug ineffective [Unknown]
  - Headache [Unknown]
  - Swelling [Unknown]
